FAERS Safety Report 5526475-2 (Version None)
Quarter: 2007Q4

REPORT INFORMATION
  Report Type: 
  Country: None (occurrence: None)
  Receive Date: 20071121
  Receipt Date: 20071121
  Transmission Date: 20080405
  Serious: No
  Sender: FDA-Public Use
  Company Number: None

PATIENT
  Age: 34 Year
  Sex: Male
  Weight: 79.3795 kg

DRUGS (1)
  1. VIAGRA [Suspect]
     Dosage: 1 TABLET
     Dates: start: 20030911, end: 20040918

REACTIONS (4)
  - DEAFNESS UNILATERAL [None]
  - DIZZINESS [None]
  - EAR DISCOMFORT [None]
  - TINNITUS [None]
